FAERS Safety Report 12769036 (Version 2)
Quarter: 2016Q4

REPORT INFORMATION
  Report Type: Report from Study
  Country: JP (occurrence: JP)
  Receive Date: 20160921
  Receipt Date: 20161022
  Transmission Date: 20170207
  Serious: Yes (Death)
  Sender: FDA-Public Use
  Company Number: JP-ASTRAZENECA-2016SF00587

PATIENT
  Age: 85 Year
  Sex: Male
  Weight: 61 kg

DRUGS (6)
  1. BYDUREON [Suspect]
     Active Substance: EXENATIDE
     Indication: TYPE 2 DIABETES MELLITUS
     Route: 058
     Dates: start: 20150721, end: 20151225
  2. CARBOCISTEINE [Concomitant]
     Active Substance: CARBOCYSTEINE
     Indication: EMPHYSEMA
     Dosage: 1000.0MG UNKNOWN
     Route: 048
     Dates: end: 20151225
  3. GLIMEPIRIDE. [Concomitant]
     Active Substance: GLIMEPIRIDE
     Indication: TYPE 2 DIABETES MELLITUS
     Dosage: 0.25MG UNKNOWN
     Route: 048
     Dates: end: 20151225
  4. MUCOSOLVAN L [Concomitant]
     Active Substance: AMBROXOL HYDROCHLORIDE
     Indication: EMPHYSEMA
     Dosage: 45.0MG UNKNOWN
     Route: 048
     Dates: end: 20151225
  5. HOKUNALIN:TAPE [Concomitant]
     Active Substance: TULOBUTEROL
     Indication: EMPHYSEMA
     Dosage: 2.0MG UNKNOWN
     Route: 062
     Dates: end: 20151225
  6. SPIRIVA [Concomitant]
     Active Substance: TIOTROPIUM BROMIDE MONOHYDRATE
     Indication: EMPHYSEMA
     Dosage: 5.0UG UNKNOWN
     Route: 055
     Dates: end: 20151225

REACTIONS (1)
  - Death [Fatal]

NARRATIVE: CASE EVENT DATE: 20151225
